FAERS Safety Report 20040465 (Version 1)
Quarter: 2021Q4

REPORT INFORMATION
  Report Type: Spontaneous
  Country: US (occurrence: None)
  Receive Date: 20211105
  Receipt Date: 20211105
  Transmission Date: 20220303
  Serious: Yes (Life-Threatening, Hospitalization, Disabling)
  Sender: FDA-Public Use
  Company Number: None

PATIENT
  Age: 64 Year
  Sex: Male
  Weight: 99 kg

DRUGS (10)
  1. ZANTAC [Suspect]
     Active Substance: RANITIDINE HYDROCHLORIDE
     Indication: Gastrooesophageal reflux disease
     Dosage: OTHER QUANTITY : 1000 TABLET(S);?FREQUENCY : EVERY 6 HOURS;?
     Route: 048
     Dates: start: 19920102, end: 20030426
  2. GABAPENTIN [Concomitant]
     Active Substance: GABAPENTIN
  3. TRAMADOL [Concomitant]
     Active Substance: TRAMADOL
  4. TRAZODONE [Concomitant]
     Active Substance: TRAZODONE HYDROCHLORIDE
  5. PEPCID [Concomitant]
     Active Substance: FAMOTIDINE
  6. PREVISTATIN [Concomitant]
  7. METOPROLOL [Concomitant]
     Active Substance: METOPROLOL
  8. METOPROLOL [Concomitant]
     Active Substance: METOPROLOL
  9. LOSARTAN [Concomitant]
     Active Substance: LOSARTAN
  10. ACETAMINOPHEN [Concomitant]
     Active Substance: ACETAMINOPHEN

REACTIONS (3)
  - Renal cancer [None]
  - Cholelithiasis [None]
  - Renal neoplasm [None]

NARRATIVE: CASE EVENT DATE: 20030426
